FAERS Safety Report 7153392-7 (Version None)
Quarter: 2010Q4

REPORT INFORMATION
  Report Type: 
  Country: None (occurrence: None)
  Receive Date: 20101213
  Receipt Date: 20101209
  Transmission Date: 20110411
  Serious: Yes (Death, Life-Threatening)
  Sender: FDA-Public Use
  Company Number: BR-ELI_LILLY_AND_COMPANY-BR201007003955

PATIENT
  Sex: Male
  Weight: 72 kg

DRUGS (26)
  1. PRASUGREL HYDROCHLORIDE [Suspect]
     Indication: ACUTE CORONARY SYNDROME
     Dosage: UNK, UNK
     Dates: start: 20100702, end: 20100715
  2. ASPIRIN [Concomitant]
     Dosage: UNK, UNK
     Dates: start: 20100201, end: 20100715
  3. ENOXAPARIN SODIUM [Concomitant]
     Indication: PROPHYLAXIS
     Dosage: UNK, UNK
     Dates: start: 20100629, end: 20100715
  4. CARVEDILOL [Concomitant]
     Indication: CARDIAC FAILURE
     Dosage: UNK, UNK
     Dates: start: 20100629, end: 20100715
  5. CAPOTEN [Concomitant]
     Indication: HYPERTENSION
     Dosage: UNK, UNK
     Dates: start: 20100629, end: 20100715
  6. SIMVASTATIN [Concomitant]
     Indication: ARTERIOSCLEROSIS
     Dosage: UNK, UNK
     Dates: start: 20100629, end: 20100715
  7. MONONITRATO DE ISOSSORBIDA [Concomitant]
     Indication: CORONARY ARTERY INSUFFICIENCY
     Dosage: UNK, UNK
     Dates: start: 20100629, end: 20100715
  8. DIGOXIN [Concomitant]
     Indication: CARDIAC FAILURE
     Dosage: UNK, UNK
     Dates: start: 20100629, end: 20100715
  9. FUROSEMIDE [Concomitant]
     Indication: CARDIAC FAILURE
     Dosage: UNK, UNK
     Dates: start: 20100629, end: 20100715
  10. ALDACTONE [Concomitant]
     Indication: HYPERTENSION
     Dosage: UNK, UNK
     Dates: start: 20100629, end: 20100715
  11. DIPYRONE [Concomitant]
     Indication: PROPHYLAXIS
     Dosage: UNK, UNK
     Dates: start: 20100701, end: 20100715
  12. ISORDIL [Concomitant]
     Indication: CORONARY ARTERY INSUFFICIENCY
     Dosage: UNK, UNK
     Dates: start: 20100703, end: 20100715
  13. TRIDIL /00003201/ [Concomitant]
     Indication: CORONARY ARTERY INSUFFICIENCY
     Dosage: UNK, UNK
     Dates: start: 20100703, end: 20100715
  14. RANITIDINE [Concomitant]
     Indication: PROPHYLAXIS
     Dosage: UNK, UNK
     Dates: start: 20100703, end: 20100715
  15. TRAMADOL HYDROCHLORIDE [Concomitant]
     Indication: PROPHYLAXIS
     Dosage: UNK, UNK
     Dates: start: 20100703, end: 20100715
  16. TILATIL [Concomitant]
     Indication: PROPHYLAXIS
     Dosage: UNK, UNK
     Dates: start: 20100703, end: 20100715
  17. DIMORF [Concomitant]
     Indication: PROPHYLAXIS
     Dosage: UNK, UNK
     Dates: start: 20100705, end: 20100715
  18. SELOKEN [Concomitant]
     Indication: CONGESTIVE CARDIOMYOPATHY
     Dosage: UNK, UNK
     Dates: start: 20100706, end: 20100715
  19. METOCLOPRAMIDA [Concomitant]
     Indication: PROPHYLAXIS
     Dosage: UNK, UNK
     Dates: start: 20100706, end: 20100715
  20. ZYLORIC [Concomitant]
     Indication: PROPHYLAXIS
     Dosage: UNK, UNK
     Dates: start: 20100707, end: 20100715
  21. COLCHICINA [Concomitant]
     Indication: PROPHYLAXIS
     Dosage: UNK, UNK
     Dates: start: 20100706, end: 20100715
  22. DOBUTAMINA [Concomitant]
     Indication: CARDIAC FAILURE
     Dosage: UNK, UNK
     Dates: start: 20100706, end: 20100715
  23. DESLANOSIDE [Concomitant]
     Indication: CARDIAC FAILURE
     Dosage: UNK, UNK
     Dates: start: 20100707, end: 20100715
  24. DULCOLAX [Concomitant]
     Indication: PROPHYLAXIS
     Dosage: UNK, UNK
     Dates: start: 20100708, end: 20100715
  25. LUFTAL [Concomitant]
     Indication: PROPHYLAXIS
     Dosage: UNK, UNK
     Dates: start: 20100708, end: 20100715
  26. HEPARIN [Concomitant]
     Indication: ANTICOAGULANT THERAPY
     Dates: start: 20100629, end: 20100714

REACTIONS (2)
  - CARDIAC TAMPONADE [None]
  - PERICARDIAL EFFUSION [None]
